FAERS Safety Report 10406828 (Version 2)
Quarter: 2014Q3

REPORT INFORMATION
  Report Type: Spontaneous
  Country: US (occurrence: US)
  Receive Date: 20140825
  Receipt Date: 20140825
  Transmission Date: 20150326
  Serious: No
  Sender: FDA-Public Use
  Company Number: US-ASTRAZENECA-2013SE81419

PATIENT
  Age: 25829 Day
  Sex: Female
  Weight: 59 kg

DRUGS (6)
  1. CALCIUM [Concomitant]
     Active Substance: CALCIUM
     Indication: OSTEOPOROSIS PROPHYLAXIS
  2. AMLODIPINE BESYLATE. [Concomitant]
     Active Substance: AMLODIPINE BESYLATE
     Indication: BLOOD PRESSURE
     Dates: start: 201310
  3. SYMBICORT [Suspect]
     Active Substance: BUDESONIDE\FORMOTEROL FUMARATE DIHYDRATE
     Indication: CHRONIC OBSTRUCTIVE PULMONARY DISEASE
     Dosage: 160/4.5 MCG, 1 PUFF, TWO TIMES A DAY
     Route: 055
     Dates: start: 20130626, end: 2013
  4. MULTIVITAMIN WITH VITAMIN C [Concomitant]
     Dosage: 1 DAILY
     Dates: start: 2008
  5. CRESTOR [Suspect]
     Active Substance: ROSUVASTATIN CALCIUM
     Indication: BLOOD PRESSURE
     Route: 048
     Dates: start: 2008
  6. SPIRIVA [Concomitant]
     Active Substance: TIOTROPIUM BROMIDE MONOHYDRATE
     Dosage: DAILY
     Route: 055

REACTIONS (4)
  - Diarrhoea [Recovered/Resolved]
  - Insomnia [Recovered/Resolved]
  - Device misuse [Unknown]
  - Off label use [Unknown]

NARRATIVE: CASE EVENT DATE: 20130626
